FAERS Safety Report 9181124 (Version 1)
Quarter: 2013Q1

REPORT INFORMATION
  Report Type: Spontaneous
  Country: US (occurrence: US)
  Receive Date: 20130322
  Receipt Date: 20130322
  Transmission Date: 20140127
  Serious: No
  Sender: FDA-Public Use
  Company Number: US-MYLANLABS-2012S1006641

PATIENT
  Age: 43 Year
  Sex: Male
  Weight: 77.11 kg

DRUGS (6)
  1. EMSAM [Suspect]
     Indication: DEPRESSION
     Route: 062
     Dates: start: 201112
  2. COMPLERA [Concomitant]
     Indication: HIV INFECTION
  3. VIAGRA [Concomitant]
  4. MVI [Concomitant]
  5. VITAMIN C [Concomitant]
  6. NO DRUG NAME [Concomitant]

REACTIONS (1)
  - Drug screen false positive [Not Recovered/Not Resolved]
